FAERS Safety Report 10774741 (Version 2)
Quarter: 2015Q1

REPORT INFORMATION
  Report Type: Spontaneous
  Country: JP (occurrence: JP)
  Receive Date: 20150209
  Receipt Date: 20150223
  Transmission Date: 20150721
  Serious: Yes (Hospitalization)
  Sender: FDA-Public Use
  Company Number: JP-009507513-1502JPN001354

PATIENT
  Age: 81 Year
  Sex: Male

DRUGS (16)
  1. HOKUNALIN [Concomitant]
     Active Substance: TULOBUTEROL
     Dosage: DAILY DOSE UNKNOWN
     Route: 065
  2. MYSLEE [Concomitant]
     Active Substance: ZOLPIDEM TARTRATE
     Dosage: DAILY DOSAGE UNKNOWN
     Route: 048
  3. NU-LOTAN [Suspect]
     Active Substance: LOSARTAN POTASSIUM
     Dosage: DAILY DOSE UNKNOWN
     Route: 048
     Dates: end: 20140918
  4. JANUVIA [Concomitant]
     Active Substance: SITAGLIPTIN PHOSPHATE
     Dosage: DAILY DOSAGE UNKNOWN
     Route: 048
     Dates: end: 20140918
  5. RESTAMIN (DIPHENHYDRAMINE HYDROCHLORIDE) [Concomitant]
     Active Substance: DIPHENHYDRAMINE HYDROCHLORIDE
     Dosage: DAILY DOSE UNKNOWN
     Route: 065
     Dates: start: 20140919
  6. ALLELOCK [Concomitant]
     Active Substance: OLOPATADINE HYDROCHLORIDE
     Dosage: DAILY DOSAGE UNKNOWN
     Route: 048
     Dates: end: 20140919
  7. SEREVENT [Concomitant]
     Active Substance: SALMETEROL XINAFOATE
     Dosage: DAILY DOSAGE UNKNOWN
     Route: 065
  8. UNIPHYL LA [Suspect]
     Active Substance: THEOPHYLLINE ANHYDROUS
     Dosage: DAILY DOSAGE UNKNOWN
     Route: 048
  9. RINDERON V [Concomitant]
     Active Substance: BETAMETHASONE VALERATE
     Dosage: DAILY DOSAGE UNKNOWN
     Route: 048
  10. ITOROL [Concomitant]
     Active Substance: ISOSORBIDE MONONITRATE
     Dosage: DAILY DOSAGE UNKNOWN
     Route: 048
  11. MAGLAX (MAGNESIUM OXIDE) [Concomitant]
     Active Substance: MAGNESIUM OXIDE
     Dosage: DAILY DOSAGE UNKNOWN
     Route: 048
  12. ATARAX [Concomitant]
     Active Substance: HYDROXYZINE\HYDROXYZINE HYDROCHLORIDE
     Dosage: DAILY DOSAGE UNKNOWN
     Route: 065
     Dates: start: 20140919, end: 20141003
  13. TALION (BEPOTASTINE BESYLATE) [Concomitant]
     Active Substance: BEPOTASTINE
     Dosage: DAILY DOSAGE UNKNOWN
     Route: 048
     Dates: start: 20140919
  14. SOLVEGA [Concomitant]
     Dosage: DAILY DOSAGE UNKNOWN
     Route: 065
     Dates: start: 20140917
  15. CELESTAMINE COMBINATION TABLETS [Concomitant]
     Dosage: DAILY DOSAGE UNKNOWN
     Route: 048
     Dates: end: 20140918
  16. ATARAX [Concomitant]
     Active Substance: HYDROXYZINE\HYDROXYZINE HYDROCHLORIDE
     Dosage: DAILY DOSE UNKNOWN
     Route: 065
     Dates: end: 20140919

REACTIONS (2)
  - Toxic skin eruption [Recovering/Resolving]
  - Paraesthesia oral [Unknown]

NARRATIVE: CASE EVENT DATE: 201309
